FAERS Safety Report 6435198-7 (Version None)
Quarter: 2009Q4

REPORT INFORMATION
  Report Type: 
  Country: None (occurrence: None)
  Receive Date: 20091106
  Receipt Date: 20091027
  Transmission Date: 20100525
  Serious: Yes (Hospitalization, Other)
  Sender: FDA-Public Use
  Company Number: FABR-1000661

PATIENT
  Age: 54 Year
  Sex: Male

DRUGS (6)
  1. FABRAZYME [Suspect]
     Indication: FABRY'S DISEASE
     Dosage: 70 MG, Q2W, INTRAVENOUS
     Route: 042
     Dates: start: 20030101, end: 20090216
  2. FABRAZYME [Suspect]
     Indication: FABRY'S DISEASE
     Dosage: 70 MG, Q2W, INTRAVENOUS
     Route: 042
     Dates: start: 20090924
  3. PRAVADUAL [Concomitant]
  4. PLAVIX [Concomitant]
  5. TENORMIN [Concomitant]
  6. TEGRETOL [Concomitant]

REACTIONS (8)
  - ANAPHYLACTOID REACTION [None]
  - BRADYCARDIA [None]
  - COUGH [None]
  - INFUSION RELATED REACTION [None]
  - OXYGEN SATURATION DECREASED [None]
  - PARAESTHESIA [None]
  - RASH [None]
  - TREMOR [None]
